FAERS Safety Report 16469740 (Version 1)
Quarter: 2019Q3

REPORT INFORMATION
  Report Type: Spontaneous
  Country: US (occurrence: US)
  Receive Date: 20190623
  Receipt Date: 20190623
  Transmission Date: 20191004
  Serious: Yes (Disabling)
  Sender: FDA-Public Use
  Company Number: None

PATIENT
  Age: 23 Year
  Sex: Female
  Weight: 60.75 kg

DRUGS (2)
  1. OMEGA-3 FISH OIL [Concomitant]
     Active Substance: FISH OIL\OMEGA-3 FATTY ACIDS
  2. INVEGA SUSTENNA [Suspect]
     Active Substance: PALIPERIDONE PALMITATE
     Indication: PRODUCT USED FOR UNKNOWN INDICATION
     Dosage: ?          QUANTITY:2 INJECTION(S);OTHER FREQUENCY:AFTER 4 WEEKS;?
     Route: 030
     Dates: start: 20190326, end: 20190404

REACTIONS (6)
  - Speech disorder [None]
  - Emotional poverty [None]
  - Intellectual disability [None]
  - Depression [None]
  - Gait inability [None]
  - Feeling abnormal [None]

NARRATIVE: CASE EVENT DATE: 20190326
